FAERS Safety Report 13330376 (Version 2)
Quarter: 2017Q2

REPORT INFORMATION
  Report Type: Spontaneous
  Country: RE (occurrence: FR)
  Receive Date: 20170314
  Receipt Date: 20170428
  Transmission Date: 20170830
  Serious: Yes (Other)
  Sender: FDA-Public Use
  Company Number: RE-BRISTOL-MYERS SQUIBB COMPANY-BMS-2017-019564

PATIENT
  Age: 58 Year
  Sex: Male
  Weight: 64 kg

DRUGS (1)
  1. NIVOLUMAB [Suspect]
     Active Substance: NIVOLUMAB
     Indication: BRONCHIAL CARCINOMA
     Dosage: 3 MG/KG, Q2WK
     Route: 065

REACTIONS (1)
  - Rheumatoid arthritis [Not Recovered/Not Resolved]

NARRATIVE: CASE EVENT DATE: 20161205
